FAERS Safety Report 24010032 (Version 2)
Quarter: 2024Q2

REPORT INFORMATION
  Report Type: Report from Study
  Country: BR (occurrence: BR)
  Receive Date: 20240625
  Receipt Date: 20240627
  Transmission Date: 20240715
  Serious: Yes (Death, Other)
  Sender: FDA-Public Use
  Company Number: BR-PFIZER INC-202400198274

PATIENT
  Sex: Male

DRUGS (11)
  1. CARBOPLATIN [Suspect]
     Active Substance: CARBOPLATIN
     Indication: Germ cell cancer
     Dosage: 700 MG/M2, CYCLIC (2 CYCLES FOR 3 CONSECUTIVE DAYS)
     Dates: start: 2019
  2. ETOPOSIDE [Suspect]
     Active Substance: ETOPOSIDE
     Indication: Germ cell cancer
     Dosage: 750 MG/M2, CYCLIC (2 CYCLES FOR 3 CONSECUTIVE DAYS)
     Dates: start: 2019
  3. PACLITAXEL [Suspect]
     Active Substance: PACLITAXEL
     Indication: Germ cell cancer
     Dosage: UNK, CYCLIC
     Dates: start: 2019
  4. PACLITAXEL [Suspect]
     Active Substance: PACLITAXEL
     Indication: Haematopoietic stem cell mobilisation
  5. IFOSFAMIDE [Suspect]
     Active Substance: IFOSFAMIDE
     Indication: Germ cell cancer
     Dosage: UNK, CYCLIC
     Dates: start: 2019
  6. IFOSFAMIDE [Suspect]
     Active Substance: IFOSFAMIDE
     Indication: Haematopoietic stem cell mobilisation
  7. ACYCLOVIR [Concomitant]
     Active Substance: ACYCLOVIR
     Dosage: UNK
  8. FLUCONAZOLE [Concomitant]
     Active Substance: FLUCONAZOLE
     Dosage: UNK
  9. GRANULOCYTE COLONY-STIMULATING FACTOR NOS [Concomitant]
     Active Substance: GRANULOCYTE COLONY-STIMULATING FACTOR NOS
     Dosage: UNK
  10. LEVOFLOXACIN [Concomitant]
     Active Substance: LEVOFLOXACIN
     Dosage: UNK
  11. SULFAMETHOXAZOLE\TRIMETHOPRIM [Concomitant]
     Active Substance: SULFAMETHOXAZOLE\TRIMETHOPRIM
     Dosage: UNK

REACTIONS (1)
  - Hepatic failure [Fatal]
